FAERS Safety Report 18129778 (Version 1)
Quarter: 2020Q3

REPORT INFORMATION
  Report Type: Spontaneous
  Country: US (occurrence: US)
  Receive Date: 20200810
  Receipt Date: 20200810
  Transmission Date: 20201103
  Serious: No
  Sender: FDA-Public Use
  Company Number: US-PERRIGO-20US000169

PATIENT
  Sex: Female

DRUGS (3)
  1. LORATADINE. [Suspect]
     Active Substance: LORATADINE
     Indication: COUGH
     Dosage: 10 MG, TWICE IN 8 HOURS
     Route: 048
     Dates: start: 20200105, end: 20200105
  2. LORATADINE. [Suspect]
     Active Substance: LORATADINE
     Indication: SNEEZING
  3. LORATADINE. [Suspect]
     Active Substance: LORATADINE
     Indication: RHINORRHOEA

REACTIONS (2)
  - Inappropriate schedule of product administration [Recovered/Resolved]
  - Drug ineffective for unapproved indication [Unknown]

NARRATIVE: CASE EVENT DATE: 20200105
